FAERS Safety Report 7396874-5 (Version None)
Quarter: 2011Q2

REPORT INFORMATION
  Report Type: 
  Country: None (occurrence: None)
  Receive Date: 20110406
  Receipt Date: 20110103
  Transmission Date: 20111010
  Serious: No
  Sender: FDA-Public Use
  Company Number: US-BAYER-2011-028011

PATIENT
  Sex: Female

DRUGS (1)
  1. ONE A DAY WOMEN'S ACTIVE METABOLISM [Suspect]
     Indication: VITAMIN SUPPLEMENTATION
     Route: 048

REACTIONS (1)
  - INSOMNIA [None]
